FAERS Safety Report 10216333 (Version 3)
Quarter: 2014Q3

REPORT INFORMATION
  Report Type: Spontaneous
  Country: DE (occurrence: DE)
  Receive Date: 20140604
  Receipt Date: 20140711
  Transmission Date: 20150326
  Serious: Yes (Disabling)
  Sender: FDA-Public Use
  Company Number: DE-PFIZER INC-2014131345

PATIENT
  Age: 63 Year
  Sex: Female

DRUGS (1)
  1. XALATAN [Suspect]
     Active Substance: LATANOPROST
     Indication: GLAUCOMA
     Dosage: 1 GTT, DAILY
     Dates: start: 200906, end: 201310

REACTIONS (1)
  - Anosmia [Not Recovered/Not Resolved]

NARRATIVE: CASE EVENT DATE: 201103
